FAERS Safety Report 12294187 (Version 2)
Quarter: 2016Q2

REPORT INFORMATION
  Report Type: Spontaneous
  Country: US (occurrence: US)
  Receive Date: 20160422
  Receipt Date: 20160509
  Transmission Date: 20160815
  Serious: Yes (Other)
  Sender: FDA-Public Use
  Company Number: US-BEH-2016061486

PATIENT
  Age: 76 Year
  Sex: Male
  Weight: 81 kg

DRUGS (4)
  1. FENTANYL. [Suspect]
     Active Substance: FENTANYL
     Dosage: 75 UG/HR
  2. KCENTRA [Suspect]
     Active Substance: COAGULATION FACTOR IX HUMAN\COAGULATION FACTOR VII HUMAN\COAGULATION FACTOR X HUMAN\PROTEIN C\PROTEIN S HUMAN\PROTHROMBIN
     Indication: ANTICOAGULANT THERAPY
     Dosage: MAXIMAL RATE OF 8.4ML/MIN; PRESCRIBED 2260 UNITS; DOSE; APPROXIMATELY 28 UNITS/KG
  3. PHYTONADIONE. [Suspect]
     Active Substance: PHYTONADIONE
  4. KCENTRA [Suspect]
     Active Substance: COAGULATION FACTOR IX HUMAN\COAGULATION FACTOR VII HUMAN\COAGULATION FACTOR X HUMAN\PROTEIN C\PROTEIN S HUMAN\PROTHROMBIN
     Indication: ANTICOAGULANT THERAPY
     Dosage: MAXIMAL RATE OF 8.4ML/MIN; PRESCRIBED 2260 UNITS; DOSE; APPROXIMATELY 28 UNITS/KG

REACTIONS (1)
  - Hypotension [Not Recovered/Not Resolved]
